FAERS Safety Report 11776719 (Version 1)
Quarter: 2015Q4

REPORT INFORMATION
  Report Type: Spontaneous
  Country: US (occurrence: None)
  Receive Date: 20151124
  Receipt Date: 20151124
  Transmission Date: 20160304
  Serious: Yes (Life-Threatening, Hospitalization)
  Sender: FDA-Public Use
  Company Number: None

PATIENT
  Age: 80 Year
  Sex: Male
  Weight: 88.45 kg

DRUGS (5)
  1. DEPO-MEDROL [Suspect]
     Active Substance: METHYLPREDNISOLONE ACETATE
     Indication: PAIN MANAGEMENT
     Dosage: 80 MG/MC, 40MG/MC, INJECTED INTO SPINAL AREA
     Dates: start: 20151026
  2. DEPO-MEDROL [Suspect]
     Active Substance: METHYLPREDNISOLONE ACETATE
     Indication: PAIN MANAGEMENT
     Dosage: 40 TO 80 MG/MC INJECTED INTO SPINAL ARA
     Dates: start: 20151026
  3. GENERIC ATATEAND [Concomitant]
  4. CENTRUM VITAMINS [Concomitant]
  5. GENERIC LIPITOR [Concomitant]
     Active Substance: ATORVASTATIN CALCIUM

REACTIONS (3)
  - Sepsis [None]
  - Meningitis bacterial [None]
  - Pneumocephalus [None]

NARRATIVE: CASE EVENT DATE: 20151026
